FAERS Safety Report 16485621 (Version 1)
Quarter: 2019Q2

REPORT INFORMATION
  Report Type: Spontaneous
  Country: IT (occurrence: IT)
  Receive Date: 20190627
  Receipt Date: 20190627
  Transmission Date: 20190711
  Serious: Yes (Other)
  Sender: FDA-Public Use
  Company Number: IT-BAYER-2019-122732

PATIENT
  Age: 71 Year
  Sex: Female

DRUGS (1)
  1. ULTRAVIST [Suspect]
     Active Substance: IOPROMIDE
     Indication: INVESTIGATION
     Dosage: 110 ML, ONCE
     Route: 042

REACTIONS (4)
  - Urticaria [Recovering/Resolving]
  - Eyelid oedema [Recovering/Resolving]
  - Nasal congestion [Recovering/Resolving]
  - Rhinitis [Recovering/Resolving]

NARRATIVE: CASE EVENT DATE: 20190618
